FAERS Safety Report 20963212 (Version 1)
Quarter: 2022Q2

REPORT INFORMATION
  Report Type: Spontaneous
  Country: CN (occurrence: US)
  Receive Date: 20220615
  Receipt Date: 20220615
  Transmission Date: 20220721
  Serious: Yes (Other)
  Sender: FDA-Public Use
  Company Number: None

PATIENT
  Age: 92 Year
  Sex: Female

DRUGS (2)
  1. METOPROLOL SUCCINATE [Suspect]
     Active Substance: METOPROLOL SUCCINATE
     Indication: Coronary artery disease
     Route: 048
     Dates: start: 20220504, end: 20220507
  2. DIGOXIN [Suspect]
     Active Substance: DIGOXIN
     Indication: Coronary artery disease
     Route: 048
     Dates: start: 20220504, end: 20220507

REACTIONS (5)
  - Sinoatrial block [Unknown]
  - Atrioventricular block first degree [Unknown]
  - Electrocardiogram ST segment abnormal [Unknown]
  - Arrhythmia [Recovering/Resolving]
  - Product use in unapproved indication [Recovering/Resolving]

NARRATIVE: CASE EVENT DATE: 20220507
